FAERS Safety Report 5173272-6 (Version None)
Quarter: 2006Q4

REPORT INFORMATION
  Report Type: 
  Country: None (occurrence: None)
  Receive Date: 20061206
  Receipt Date: 20061128
  Transmission Date: 20070319
  Serious: Yes (Other)
  Sender: FDA-Public Use
  Company Number: 233112

PATIENT
  Sex: Female
  Weight: 45.4 kg

DRUGS (1)
  1. LUCENTIS [Suspect]
     Indication: MACULAR DEGENERATION
     Dates: start: 20061101

REACTIONS (2)
  - BLINDNESS [None]
  - EYE HAEMORRHAGE [None]
